FAERS Safety Report 9321614 (Version 2)
Quarter: 2014Q1

REPORT INFORMATION
  Report Type: Spontaneous
  Country: US (occurrence: US)
  Receive Date: 20130531
  Receipt Date: 20140110
  Transmission Date: 20141002
  Serious: No
  Sender: FDA-Public Use
  Company Number: US-PFIZER INC-2013163819

PATIENT
  Age: 69 Year
  Sex: Female
  Weight: 73 kg

DRUGS (2)
  1. LEVOXYL [Suspect]
     Indication: HYPOTHYROIDISM
     Dosage: 175 UG, 1X/DAY
     Route: 060
  2. COREG [Concomitant]
     Dosage: 25 MG, DAILY

REACTIONS (3)
  - Feeling abnormal [Unknown]
  - Incorrect route of drug administration [Unknown]
  - Blood thyroid stimulating hormone increased [Unknown]
